FAERS Safety Report 7103132-2 (Version None)
Quarter: 2010Q4

REPORT INFORMATION
  Report Type: 
  Country: None (occurrence: None)
  Receive Date: 20101115
  Receipt Date: 20090303
  Transmission Date: 20110411
  Serious: No
  Sender: FDA-Public Use
  Company Number: US-KINGPHARMUSA00001-K200900224

PATIENT
  Sex: Female

DRUGS (3)
  1. CYTOMEL [Suspect]
     Dosage: UNK, BID
     Route: 048
     Dates: start: 20080601
  2. LEVOXYL [Suspect]
     Dosage: 175 MCG, UNK
     Route: 048
     Dates: end: 20080601
  3. LEVOXYL [Suspect]
     Dosage: 50 MCG, UNK
     Route: 048
     Dates: start: 20080601

REACTIONS (5)
  - ALOPECIA [None]
  - DRY SKIN [None]
  - FATIGUE [None]
  - HYPERSENSITIVITY [None]
  - LABORATORY TEST ABNORMAL [None]
